FAERS Safety Report 7636278-0 (Version None)
Quarter: 2011Q3

REPORT INFORMATION
  Report Type: 
  Country: None (occurrence: None)
  Receive Date: 20110726
  Receipt Date: 20110719
  Transmission Date: 20111222
  Serious: Yes (Death, Life-Threatening, Hospitalization, Disabling, Other)
  Sender: FDA-Public Use
  Company Number: US-GLAXOSMITHKLINE-A0713546A

PATIENT
  Age: 35 Year
  Sex: Female
  Weight: 104.5 kg

DRUGS (4)
  1. KLONOPIN [Concomitant]
  2. LEXAPRO [Concomitant]
  3. LAMICTAL [Suspect]
     Indication: DEPRESSION
     Dosage: 200MG PER DAY
     Route: 048
     Dates: start: 20080104, end: 20080212
  4. LUNESTA [Concomitant]

REACTIONS (6)
  - HAEMORRHAGE [None]
  - STEVENS-JOHNSON SYNDROME [None]
  - BRAIN DEATH [None]
  - BRAIN HERNIATION [None]
  - COMA [None]
  - BRAIN OEDEMA [None]
